FAERS Safety Report 19894234 (Version 1)
Quarter: 2021Q3

REPORT INFORMATION
  Report Type: Spontaneous
  Country: US (occurrence: US)
  Receive Date: 20210928
  Receipt Date: 20210928
  Transmission Date: 20211014
  Serious: Yes (Death)
  Sender: FDA-Public Use
  Company Number: None

PATIENT
  Age: 59 Year
  Sex: Female
  Weight: 81 kg

DRUGS (19)
  1. CAPECITABINE. [Suspect]
     Active Substance: CAPECITABINE
     Indication: BREAST CANCER
     Dosage: ?          OTHER FREQUENCY:BID FOR 14/21 DAYS;?
     Route: 048
     Dates: start: 20210814, end: 20210925
  2. SERTRALINE [Concomitant]
     Active Substance: SERTRALINE HYDROCHLORIDE
  3. LOMOTIL 2.5?0.025MG [Concomitant]
  4. TRESIBA [Concomitant]
     Active Substance: INSULIN DEGLUDEC
  5. LISINOPRIL 10MG [Concomitant]
     Active Substance: LISINOPRIL
  6. VASCEPA 0.5GM [Concomitant]
  7. TYLENOL 650MG [Concomitant]
  8. METFORMIN 500MG [Concomitant]
     Active Substance: METFORMIN HYDROCHLORIDE
  9. PRAVASTATIN 10MG [Concomitant]
     Active Substance: PRAVASTATIN
  10. LEVOTHYROXINE 25MCG [Concomitant]
     Active Substance: LEVOTHYROXINE
  11. NOVOLOG [Concomitant]
     Active Substance: INSULIN ASPART
  12. LASIX 20MG [Concomitant]
  13. LOVENOX 300MG/3ML [Concomitant]
  14. FORMOTEROL FUMARATE 20MCG/2ML [Concomitant]
  15. CARVEDILOL 25MG [Concomitant]
     Active Substance: CARVEDILOL
  16. NERLYNX 40MG [Concomitant]
  17. SPIRONOLACTONE 25MG [Concomitant]
     Active Substance: SPIRONOLACTONE
  18. ALBUTEROL SULFATE HFA [Concomitant]
     Active Substance: ALBUTEROL SULFATE
  19. BUDESONIDE 0.25MG/2ML [Concomitant]

REACTIONS (1)
  - Death [None]

NARRATIVE: CASE EVENT DATE: 20210925
